FAERS Safety Report 26001533 (Version 1)
Quarter: 2025Q4

REPORT INFORMATION
  Report Type: Spontaneous
  Country: US (occurrence: None)
  Receive Date: 20251105
  Receipt Date: 20251105
  Transmission Date: 20260118
  Serious: No
  Sender: FDA-CTU
  Company Number: None

PATIENT
  Age: 75 Year
  Sex: Male
  Weight: 102.06 kg

DRUGS (3)
  1. VANCOMYCIN [Suspect]
     Active Substance: VANCOMYCIN
     Indication: Postoperative wound infection
     Dosage: FREQUENCY : ONCE;?
     Route: 040
  2. AUGMENTIN [Suspect]
     Active Substance: AMOXICILLIN\CLAVULANATE POTASSIUM
  3. ZOSYN [Suspect]
     Active Substance: PIPERACILLIN SODIUM\TAZOBACTAM SODIUM

REACTIONS (20)
  - Malaise [None]
  - Malaise [None]
  - Respiration abnormal [None]
  - Lethargy [None]
  - Agonal respiration [None]
  - Flushing [None]
  - Apnoea [None]
  - Pulse absent [None]
  - Pulseless electrical activity [None]
  - Cardiac arrest [None]
  - Ventricular fibrillation [None]
  - Ventricular tachycardia [None]
  - Pulmonary oedema [None]
  - Cardiac arrest [None]
  - Pulmonary contusion [None]
  - Blood pressure decreased [None]
  - Anaphylactic reaction [None]
  - Electrocardiogram Q wave abnormal [None]
  - Myocardial infarction [None]
  - Bundle branch block right [None]

NARRATIVE: CASE EVENT DATE: 20251102
